FAERS Safety Report 18158435 (Version 2)
Quarter: 2020Q4

REPORT INFORMATION
  Report Type: Spontaneous
  Country: GB (occurrence: GB)
  Receive Date: 20200817
  Receipt Date: 20201009
  Transmission Date: 20210113
  Serious: Yes (Death, Hospitalization, Other)
  Sender: FDA-Public Use
  Company Number: GB-INDIVIOR US-INDV-125885-2020

PATIENT
  Sex: Female

DRUGS (5)
  1. BUPRENORPHINE TABLET [Suspect]
     Active Substance: BUPRENORPHINE
     Indication: PRODUCT USED FOR UNKNOWN INDICATION
     Dosage: UNK
     Route: 065
     Dates: start: 2017
  2. COCODAMOL [Suspect]
     Active Substance: ACETAMINOPHEN\CODEINE PHOSPHATE
     Indication: PRODUCT USED FOR UNKNOWN INDICATION
     Dosage: 8 DOSAGE FORM A DAY
     Route: 065
  3. GABAPENTIN. [Suspect]
     Active Substance: GABAPENTIN
     Indication: PRODUCT USED FOR UNKNOWN INDICATION
     Dosage: 9 DOSAGE FORM A DAY
     Route: 065
  4. BUPRENORPHINE TRANSDERMAL SYSTEM [Suspect]
     Active Substance: BUPRENORPHINE
     Indication: PRODUCT USED FOR UNKNOWN INDICATION
     Dosage: 20 MICROGRAM
     Route: 065
     Dates: start: 201005
  5. MORPHINE [Suspect]
     Active Substance: MORPHINE
     Indication: PRODUCT USED FOR UNKNOWN INDICATION
     Dosage: UNK
     Route: 065

REACTIONS (24)
  - Dementia [Fatal]
  - Amnesia [Unknown]
  - Stereotypy [Unknown]
  - Decreased appetite [Unknown]
  - Mental disorder [Unknown]
  - Arthralgia [Unknown]
  - Atrial fibrillation [Fatal]
  - Impaired healing [Unknown]
  - Vomiting [Unknown]
  - Nausea [Unknown]
  - Colitis ulcerative [Fatal]
  - Abnormal loss of weight [Unknown]
  - Somnolence [Unknown]
  - Dysphagia [Unknown]
  - Dependence [Unknown]
  - Asthenia [Unknown]
  - Dizziness [Unknown]
  - Fall [Unknown]
  - Confusional state [Unknown]
  - Toxicity to various agents [Unknown]
  - Brain injury [Unknown]
  - Hallucination [Unknown]
  - Paraesthesia [Unknown]
  - Myalgia [Unknown]

NARRATIVE: CASE EVENT DATE: 2015
